FAERS Safety Report 7328998 (Version 4)
Quarter: 2013Q4

REPORT INFORMATION
  Report Type: Spontaneous
  Country: US (occurrence: US)
  Receive Date: 20100323
  Receipt Date: 20131007
  Transmission Date: 20140711
  Serious: Yes (Hospitalization, Other)
  Sender: FDA-Public Use
  Company Number: US-ROCHE-647864

PATIENT
  Age: 19 Year
  Sex: Male
  Weight: 74.8 kg

DRUGS (1)
  1. ACCUTANE [Suspect]
     Indication: ACNE
     Route: 065
     Dates: start: 199505, end: 199604

REACTIONS (9)
  - Crohn^s disease [Unknown]
  - Perirectal abscess [Unknown]
  - Rectal fissure [Unknown]
  - Anal fistula [Unknown]
  - Abdominal abscess [Unknown]
  - Inflammatory bowel disease [Unknown]
  - Colitis ulcerative [Unknown]
  - Small intestinal obstruction [Unknown]
  - Depression [Unknown]
